FAERS Safety Report 20350314 (Version 2)
Quarter: 2022Q1

REPORT INFORMATION
  Report Type: Report from Study
  Country: US (occurrence: US)
  Receive Date: 20220119
  Receipt Date: 20220125
  Transmission Date: 20220424
  Serious: Yes (Death, Other)
  Sender: FDA-Public Use
  Company Number: US-GLAXOSMITHKLINE-US2021256741

PATIENT
  Sex: Male

DRUGS (1)
  1. BELANTAMAB MAFODOTIN [Suspect]
     Active Substance: BELANTAMAB MAFODOTIN
     Indication: Product used for unknown indication
     Dosage: UNK
     Dates: start: 20211015, end: 20211105

REACTIONS (5)
  - Death [Fatal]
  - Macular oedema [Recovering/Resolving]
  - Keratopathy [Recovering/Resolving]
  - Eye disorder [Unknown]
  - Corneal defect [Unknown]
